FAERS Safety Report 4357082-5 (Version None)
Quarter: 2004Q2

REPORT INFORMATION
  Report Type: 
  Country: None (occurrence: None)
  Receive Date: 20040512
  Receipt Date: 20040430
  Transmission Date: 20050107
  Serious: Yes (Death)
  Sender: FDA-Public Use
  Company Number: CA-ROCHE-367164

PATIENT
  Age: 58 Year
  Sex: Female

DRUGS (2)
  1. CELLCEPT [Suspect]
     Indication: DRUG USE FOR UNKNOWN INDICATION
     Route: 065
  2. NEORAL [Suspect]
     Route: 065

REACTIONS (5)
  - ENCEPHALITIS [None]
  - MENINGITIS [None]
  - MYOCLONUS [None]
  - PYREXIA [None]
  - VIRAL INFECTION [None]
